FAERS Safety Report 5339448-X (Version None)
Quarter: 2007Q2

REPORT INFORMATION
  Report Type: 
  Country: None (occurrence: None)
  Receive Date: 20070404
  Receipt Date: 20060601
  Transmission Date: 20071010
  Serious: Yes (Other)
  Sender: FDA-Public Use
  Company Number: 2006071037

PATIENT
  Sex: Female

DRUGS (9)
  1. GEODON [Suspect]
     Indication: BIPOLAR DISORDER
     Dosage: 80 MG (40 MG 2 IN 1 D)
     Dates: start: 20060520, end: 20060531
  2. LITHIUM CARBONATE [Suspect]
     Indication: BIPOLAR DISORDER
  3. DEPAKOTE [Suspect]
     Indication: BIPOLAR DISORDER
  4. TOPAMAX [Suspect]
     Indication: BIPOLAR DISORDER
     Dates: end: 20060101
  5. SEROQUEL [Suspect]
     Indication: BIPOLAR DISORDER
     Dates: end: 20060101
  6. PRAVACHOL [Concomitant]
  7. METFORMIN HCL [Concomitant]
  8. CLONAZEPAM [Concomitant]
  9. LEXAPRO [Concomitant]

REACTIONS (29)
  - ABDOMINAL DISTENSION [None]
  - ACTIVITIES OF DAILY LIVING IMPAIRED [None]
  - AGITATION [None]
  - BLOOD GLUCOSE INCREASED [None]
  - CHILLS [None]
  - CONDITION AGGRAVATED [None]
  - DEPRESSION [None]
  - DIARRHOEA [None]
  - DIZZINESS [None]
  - FALL [None]
  - HEADACHE [None]
  - HEART RATE INCREASED [None]
  - HUNGER [None]
  - HYPERHIDROSIS [None]
  - INFLUENZA LIKE ILLNESS [None]
  - INSOMNIA [None]
  - MULTIPLE SCLEROSIS [None]
  - MYALGIA [None]
  - NAUSEA [None]
  - PAIN [None]
  - PALPITATIONS [None]
  - PROCTALGIA [None]
  - PYREXIA [None]
  - RESTLESSNESS [None]
  - SWELLING FACE [None]
  - SYSTEMIC LUPUS ERYTHEMATOSUS [None]
  - THIRST [None]
  - WEIGHT DECREASED [None]
  - WEIGHT INCREASED [None]
